FAERS Safety Report 24408933 (Version 1)
Quarter: 2024Q4

REPORT INFORMATION
  Report Type: Report from Study
  Country: US (occurrence: US)
  Receive Date: 20241007
  Receipt Date: 20241007
  Transmission Date: 20250115
  Serious: Yes (Hospitalization)
  Sender: ABBVIE
  Company Number: US-ABBVIE-5951727

PATIENT
  Sex: Male

DRUGS (1)
  1. VRAYLAR [Suspect]
     Active Substance: CARIPRAZINE
     Indication: Product used for unknown indication
     Route: 048
     Dates: start: 202407

REACTIONS (1)
  - Surgery [Unknown]

NARRATIVE: CASE EVENT DATE: 20240101
